FAERS Safety Report 7840707-7 (Version None)
Quarter: 2011Q4

REPORT INFORMATION
  Report Type: 
  Country: None (occurrence: None)
  Receive Date: 20111021
  Receipt Date: 20111021
  Transmission Date: 20120403
  Serious: Yes (Hospitalization)
  Sender: FDA-Public Use
  Company Number: None

PATIENT
  Age: 50 Year
  Sex: Male
  Weight: 149.5 kg

DRUGS (1)
  1. PIPERACILLIN AND TAZOBACTAM [Suspect]
     Indication: INFECTION
     Dosage: 4.5 GM TID IV
     Route: 042
     Dates: start: 20090402, end: 20090406

REACTIONS (4)
  - DRUG HYPERSENSITIVITY [None]
  - EOSINOPHILIA [None]
  - RASH [None]
  - PYREXIA [None]
